FAERS Safety Report 5632472-9 (Version None)
Quarter: 2008Q1

REPORT INFORMATION
  Report Type: 
  Country: None (occurrence: None)
  Receive Date: 20080220
  Receipt Date: 20080206
  Transmission Date: 20080703
  Serious: Yes (Hospitalization)
  Sender: FDA-Public Use
  Company Number: JP-GENENTECH-255989

PATIENT
  Sex: Male

DRUGS (5)
  1. BEVACIZUMAB [Suspect]
     Indication: COLON CANCER
     Dosage: 5 MG/KG, UNK
     Route: 041
     Dates: start: 20070719
  2. OXALIPLATIN [Suspect]
     Indication: COLON CANCER
     Dosage: UNK, UNK
     Route: 041
     Dates: end: 20071225
  3. FLUOROURACIL [Suspect]
     Indication: COLON CANCER
     Route: 042
     Dates: end: 20071225
  4. ISOVORIN [Suspect]
     Indication: COLON CANCER
     Route: 041
     Dates: end: 20071225
  5. LASIX [Concomitant]
     Indication: DRUG USE FOR UNKNOWN INDICATION

REACTIONS (1)
  - PNEUMOTHORAX [None]
